FAERS Safety Report 7749490-7 (Version None)
Quarter: 2011Q3

REPORT INFORMATION
  Report Type: 
  Country: None (occurrence: None)
  Receive Date: 20110914
  Receipt Date: 20110908
  Transmission Date: 20111222
  Serious: Yes (Hospitalization)
  Sender: FDA-Public Use
  Company Number: US-ABBOTT-11P-163-0852735-00

PATIENT
  Sex: Female

DRUGS (2)
  1. FACIAL CREAM [Concomitant]
     Indication: PRODUCT USED FOR UNKNOWN INDICATION
  2. HUMIRA [Suspect]
     Indication: PSORIATIC ARTHROPATHY
     Route: 058

REACTIONS (4)
  - HYPERSENSITIVITY [None]
  - ERYTHEMA [None]
  - BURNING SENSATION [None]
  - ARTHROPATHY [None]
